FAERS Safety Report 11260155 (Version 2)
Quarter: 2015Q3

REPORT INFORMATION
  Report Type: Spontaneous
  Country: JP (occurrence: JP)
  Receive Date: 20150710
  Receipt Date: 20150813
  Transmission Date: 20151125
  Serious: Yes (Other)
  Sender: FDA-Public Use
  Company Number: JP-PFIZER INC-2015227775

PATIENT
  Age: 66 Year
  Sex: Female

DRUGS (4)
  1. DETRUSITOL [Suspect]
     Active Substance: TOLTERODINE TARTRATE
     Dosage: 4 MG, 1X/DAY
     Route: 048
     Dates: start: 20140225, end: 20140306
  2. DETRUSITOL [Suspect]
     Active Substance: TOLTERODINE TARTRATE
     Dosage: UNK
     Dates: end: 20150213
  3. DETRUSITOL [Suspect]
     Active Substance: TOLTERODINE TARTRATE
     Dosage: 4 MG, 1X/DAY
     Route: 048
     Dates: start: 20140407, end: 20141118
  4. DETRUSITOL [Suspect]
     Active Substance: TOLTERODINE TARTRATE
     Dosage: UNK
     Dates: start: 2015

REACTIONS (4)
  - Condition aggravated [Unknown]
  - Blood pressure increased [Unknown]
  - Renal impairment [Unknown]
  - Micturition urgency [Unknown]

NARRATIVE: CASE EVENT DATE: 201403
